FAERS Safety Report 13894513 (Version 3)
Quarter: 2017Q3

REPORT INFORMATION
  Report Type: Report from Study
  Country: None (occurrence: IL)
  Receive Date: 20170823
  Receipt Date: 20170918
  Transmission Date: 20171127
  Serious: Yes (Other)
  Sender: FDA-Public Use
  Company Number: IL-ABBVIE-17K-082-2074360-00

PATIENT
  Sex: Male

DRUGS (11)
  1. LEVOLAC 300ML [Concomitant]
     Indication: PRODUCT USED FOR UNKNOWN INDICATION
  2. EUTHYROX [Concomitant]
     Active Substance: LEVOTHYROXINE SODIUM
     Indication: PRODUCT USED FOR UNKNOWN INDICATION
  3. HUMIRA [Suspect]
     Active Substance: ADALIMUMAB
     Indication: CROHN^S DISEASE
     Dosage: CHANGED FORMULATION
     Route: 058
     Dates: start: 2017
  4. LIPITOR [Concomitant]
     Active Substance: ATORVASTATIN CALCIUM
     Indication: PRODUCT USED FOR UNKNOWN INDICATION
  5. HUMIRA [Suspect]
     Active Substance: ADALIMUMAB
     Indication: CROHN^S DISEASE
     Route: 058
     Dates: start: 20140320, end: 2017
  6. OPTILAST EYE 6 ML [Concomitant]
     Indication: PRODUCT USED FOR UNKNOWN INDICATION
  7. BETMIGA [Concomitant]
     Active Substance: MIRABEGRON
     Indication: PRODUCT USED FOR UNKNOWN INDICATION
  8. MIRO [Concomitant]
     Indication: PRODUCT USED FOR UNKNOWN INDICATION
  9. LUSTRAL [Concomitant]
     Active Substance: SERTRALINE HYDROCHLORIDE
     Indication: PRODUCT USED FOR UNKNOWN INDICATION
  10. AQUEOUS 100 ML [Concomitant]
     Indication: PRODUCT USED FOR UNKNOWN INDICATION
  11. FEXOFENADINE [Concomitant]
     Active Substance: FEXOFENADINE\FEXOFENADINE HYDROCHLORIDE
     Indication: PRODUCT USED FOR UNKNOWN INDICATION

REACTIONS (4)
  - Ileal stenosis [Unknown]
  - Renal cyst [Unknown]
  - Renal cell carcinoma [Unknown]
  - Gastrointestinal fistula [Unknown]
